FAERS Safety Report 6730769-2 (Version None)
Quarter: 2010Q2

REPORT INFORMATION
  Report Type: 
  Country: None (occurrence: None)
  Receive Date: 20100518
  Receipt Date: 20100504
  Transmission Date: 20101027
  Serious: Yes (Other)
  Sender: FDA-Public Use
  Company Number: US-ALLERGAN-1005946US

PATIENT
  Age: 61 Year
  Sex: Female

DRUGS (7)
  1. PREDNISOLONE ACETATE UNK [Suspect]
     Indication: KERATITIS HERPETIC
  2. ATROPINE SULFATE [Suspect]
     Indication: ACANTHAMOEBA INFECTION
  3. TRIFLURIDINE [Concomitant]
  4. FAMCICLOVIR [Concomitant]
  5. PROPAMIDINE ISETIONATE [Concomitant]
  6. CHLORHEXIDINE GLUCONATE [Concomitant]
  7. NEOMYCIN [Concomitant]

REACTIONS (8)
  - ACANTHAMOEBA INFECTION [None]
  - CONDITION AGGRAVATED [None]
  - CORNEAL EPITHELIUM DEFECT [None]
  - DRUG INEFFECTIVE [None]
  - ENDOPHTHALMITIS [None]
  - KERATITIS [None]
  - PAIN [None]
  - VISUAL ACUITY REDUCED [None]
